FAERS Safety Report 5002042-4 (Version None)
Quarter: 2006Q2

REPORT INFORMATION
  Report Type: 
  Country: None (occurrence: None)
  Receive Date: 20060515
  Receipt Date: 20060202
  Transmission Date: 20061013
  Serious: Yes (Disabling)
  Sender: FDA-Public Use
  Company Number: US-MERCK-0602USA01645

PATIENT
  Age: 48 Year
  Sex: Female
  Weight: 76 kg

DRUGS (1)
  1. VIOXX [Suspect]
     Indication: ARTHRITIS
     Route: 048
     Dates: start: 20010404, end: 20010401

REACTIONS (6)
  - ARTHRITIS INFECTIVE [None]
  - DEEP VEIN THROMBOSIS [None]
  - FALL [None]
  - JOINT INJURY [None]
  - PULMONARY EMBOLISM [None]
  - SWELLING [None]
